FAERS Safety Report 15665975 (Version 1)
Quarter: 2018Q4

REPORT INFORMATION
  Report Type: Spontaneous
  Country: US (occurrence: US)
  Receive Date: 20181119
  Receipt Date: 20181119
  Transmission Date: 20190205
  Serious: Yes (Hospitalization)
  Sender: FDA-Public Use
  Company Number: None

PATIENT
  Age: 43 Year
  Sex: Female

DRUGS (15)
  1. TOPIRAMATE. [Concomitant]
     Active Substance: TOPIRAMATE
  2. RANITIDINE. [Concomitant]
     Active Substance: RANITIDINE
  3. ACETAMINOPHEN. [Concomitant]
     Active Substance: ACETAMINOPHEN
  4. BUPROPION. [Concomitant]
     Active Substance: BUPROPION
  5. OXYCODONE [Concomitant]
     Active Substance: OXYCODONE
  6. OXYBUTYNIN. [Concomitant]
     Active Substance: OXYBUTYNIN CHLORIDE
  7. UPTRAVI [Concomitant]
     Active Substance: SELEXIPAG
  8. TRAZODONE [Concomitant]
     Active Substance: TRAZODONE HYDROCHLORIDE
  9. LEXAPRO [Concomitant]
     Active Substance: ESCITALOPRAM OXALATE
  10. SILENAFIL [Concomitant]
  11. ZYPREXA [Concomitant]
     Active Substance: OLANZAPINE
  12. MVI  WITH MINERALS [Concomitant]
  13. SPIRONOLACTONE. [Concomitant]
     Active Substance: SPIRONOLACTONE
  14. OPSUMIT [Suspect]
     Active Substance: MACITENTAN
     Indication: PULMONARY HYPERTENSION
     Route: 048
     Dates: start: 201512
  15. LORAZEPAN [Concomitant]
     Active Substance: LORAZEPAM

REACTIONS (5)
  - Sepsis [None]
  - Vascular device infection [None]
  - Road traffic accident [None]
  - Nausea [None]
  - Vomiting [None]

NARRATIVE: CASE EVENT DATE: 20181026
